FAERS Safety Report 7679706-7 (Version None)
Quarter: 2011Q3

REPORT INFORMATION
  Report Type: 
  Country: None (occurrence: None)
  Receive Date: 20110808
  Receipt Date: 20110801
  Transmission Date: 20111222
  Serious: Yes (Death, Hospitalization)
  Sender: FDA-Public Use
  Company Number: 2011SP036084

PATIENT
  Age: 82 Year
  Sex: Male

DRUGS (4)
  1. DIPROSONE [Suspect]
     Indication: PRODUCT USED FOR UNKNOWN INDICATION
     Dosage: 1 DF;QD;TOP
     Route: 061
     Dates: end: 20110713
  2. CLOBETASOL PROPIONATE [Suspect]
     Indication: PRODUCT USED FOR UNKNOWN INDICATION
     Dosage: 1 DF; TOP
     Route: 061
     Dates: end: 20110712
  3. BICNU [Suspect]
     Indication: PRODUCT USED FOR UNKNOWN INDICATION
     Dosage: 1 DF;TIW;TOP
     Route: 061
     Dates: start: 20110704, end: 20110713
  4. METHOTREXATE SODIUM [Suspect]
     Indication: PRODUCT USED FOR UNKNOWN INDICATION
     Dosage: 20 MG;QW;PARN
     Dates: start: 20110704, end: 20110711

REACTIONS (4)
  - BLOOD CULTURE POSITIVE [None]
  - LYMPHOPENIA [None]
  - STREPTOCOCCAL INFECTION [None]
  - NECROTISING FASCIITIS [None]
